FAERS Safety Report 7073230-0 (Version None)
Quarter: 2010Q4

REPORT INFORMATION
  Report Type: 
  Country: None (occurrence: None)
  Receive Date: 20101029
  Receipt Date: 20100527
  Transmission Date: 20110411
  Serious: No
  Sender: FDA-Public Use
  Company Number: A0859398A

PATIENT
  Age: 83 Year
  Sex: Male

DRUGS (2)
  1. ADVAIR DISKUS 100/50 [Suspect]
     Indication: CHRONIC OBSTRUCTIVE PULMONARY DISEASE
     Dosage: 1PUFF TWICE PER DAY
     Route: 055
     Dates: start: 20100401
  2. NO CONCURRENT MEDICATION [Concomitant]

REACTIONS (1)
  - DYSPHONIA [None]
